FAERS Safety Report 6532095-3 (Version None)
Quarter: 2010Q1

REPORT INFORMATION
  Report Type: 
  Country: None (occurrence: None)
  Receive Date: 20100107
  Receipt Date: 20100107
  Transmission Date: 20100710
  Serious: No
  Sender: FDA-Public Use
  Company Number: None

PATIENT

DRUGS (3)
  1. BACTRIM DS [Suspect]
     Indication: BRONCHITIS
     Dosage: ONE TABLET TWICE DAILY PO
     Route: 048
     Dates: start: 19850101, end: 20091231
  2. BACTRIM DS [Suspect]
     Indication: SINUSITIS
     Dosage: ONE TABLET TWICE DAILY PO
     Route: 048
     Dates: start: 19850101, end: 20091231
  3. BACTRIM DS [Suspect]
     Indication: URINARY TRACT INFECTION
     Dosage: ONE TABLET TWICE DAILY PO
     Route: 048
     Dates: start: 19850101, end: 20091231

REACTIONS (13)
  - ARTHRALGIA [None]
  - ASTHENIA [None]
  - CHEST DISCOMFORT [None]
  - CHEST PAIN [None]
  - DEPRESSION [None]
  - DYSPNOEA [None]
  - FATIGUE [None]
  - HYPERSENSITIVITY [None]
  - MUSCULOSKELETAL STIFFNESS [None]
  - MYALGIA [None]
  - NECK PAIN [None]
  - PYREXIA [None]
  - RASH [None]
